FAERS Safety Report 15795362 (Version 1)
Quarter: 2019Q1

REPORT INFORMATION
  Report Type: Spontaneous
  Country: GB (occurrence: GB)
  Receive Date: 20190107
  Receipt Date: 20190107
  Transmission Date: 20190417
  Serious: Yes (Life-Threatening, Other)
  Sender: FDA-Public Use
  Company Number: PHHY2019GB001380

PATIENT
  Age: 42 Year
  Sex: Male
  Weight: 58 kg

DRUGS (2)
  1. CLEMIZOLE PENICILLIN [Suspect]
     Active Substance: CLEMIZOLE PENICILLIN
     Indication: PRODUCT USED FOR UNKNOWN INDICATION
     Route: 030
  2. PHENOXYMETHYLPENICILLIN [Suspect]
     Active Substance: PENICILLIN V
     Indication: PRODUCT USED FOR UNKNOWN INDICATION
     Route: 065

REACTIONS (1)
  - Asthma [Unknown]

NARRATIVE: CASE EVENT DATE: 20180313
